FAERS Safety Report 8006159-1 (Version None)
Quarter: 2011Q4

REPORT INFORMATION
  Report Type: 
  Country: None (occurrence: None)
  Receive Date: 20111226
  Receipt Date: 20111216
  Transmission Date: 20120403
  Serious: Yes (Other)
  Sender: FDA-Public Use
  Company Number: US-BRISTOL-MYERS SQUIBB COMPANY-16299588

PATIENT
  Sex: Male

DRUGS (5)
  1. AVAPRO [Suspect]
     Dosage: AVAPRO 150MG TO 75MG
  2. COUMADIN [Suspect]
  3. WARFARIN SODIUM [Suspect]
  4. DILTIAZEM HCL [Suspect]
  5. AMIODARONE HCL [Suspect]

REACTIONS (3)
  - HEART RATE DECREASED [None]
  - BLOOD PRESSURE DECREASED [None]
  - ATRIAL FIBRILLATION [None]
